FAERS Safety Report 13456295 (Version 1)
Quarter: 2017Q2

REPORT INFORMATION
  Report Type: Spontaneous
  Country: US (occurrence: US)
  Receive Date: 20170419
  Receipt Date: 20170419
  Transmission Date: 20170830
  Serious: Yes (Hospitalization, Other)
  Sender: FDA-Public Use
  Company Number: US-IBIGEN-2017.02411

PATIENT
  Age: 13 Year
  Sex: Male

DRUGS (2)
  1. TACROLIMUS. [Interacting]
     Active Substance: TACROLIMUS
     Indication: IMMUNOSUPPRESSION
     Dosage: 2 DOSAGES 1.5 MG DAILY
     Route: 048
  2. NAFCILLIN [Suspect]
     Active Substance: NAFCILLIN\NAFCILLIN SODIUM
     Indication: EVIDENCE BASED TREATMENT
     Dosage: 1 DOSAGE 2000 MG EVERY 6 HOUR(S)
     Route: 042

REACTIONS (1)
  - Drug interaction [Recovered/Resolved]
